FAERS Safety Report 8387403-8 (Version None)
Quarter: 2012Q2

REPORT INFORMATION
  Report Type: 
  Country: None (occurrence: None)
  Receive Date: 20120525
  Receipt Date: 20120517
  Transmission Date: 20120825
  Serious: Yes (Hospitalization)
  Sender: FDA-Public Use
  Company Number: CA-BAXTER-2012BAX005188

PATIENT
  Sex: Female

DRUGS (5)
  1. DIANEAL [Suspect]
     Indication: PERITONEAL DIALYSIS
     Route: 033
  2. HECTOROL [Concomitant]
  3. OMEPRAZOLE [Concomitant]
  4. LASIX [Concomitant]
  5. LISINOPRIL [Concomitant]
     Route: 048

REACTIONS (6)
  - PALPITATIONS [None]
  - CARDIAC DISORDER [None]
  - DYSGEUSIA [None]
  - CARDIAC FLUTTER [None]
  - EXTRASYSTOLES [None]
  - INSOMNIA [None]
